FAERS Safety Report 5506639-4 (Version None)
Quarter: 2007Q4

REPORT INFORMATION
  Report Type: 
  Country: None (occurrence: None)
  Receive Date: 20071101
  Receipt Date: 20070619
  Transmission Date: 20080405
  Serious: Yes (Hospitalization)
  Sender: FDA-Public Use
  Company Number: 000#5#2007-00195

PATIENT
  Age: 68 Year
  Sex: Male

DRUGS (14)
  1. ROTIGOTINE (DOSE UNKNOWN), PATCH (SILICONE) (ROTIGOTINE) [Suspect]
     Dosage: 12 MG/24H (12 M/24H 1 IN 1 DAY(S))
     Route: 062
     Dates: start: 20040324, end: 20070618
  2. SELEGILINE (SELEGILINE) [Concomitant]
  3. ROFECOXIB [Concomitant]
  4. CARBIDOPA, LEVODOPA (CARBIDOPA, LEVODOPA) [Concomitant]
  5. TOCOPHEROL (TOCOPHEROL) [Concomitant]
  6. IBUPROFEN [Concomitant]
  7. CORTISONE ACETATE [Concomitant]
  8. NAPROXEN SODIUM [Concomitant]
  9. TAMSULOSIN HYDROCHLORIDE (MORNIFLUMATE) [Concomitant]
  10. SOLIFENACIN [Concomitant]
  11. RASAGILINE [Concomitant]
  12. MACROGOL [Concomitant]
  13. BRINZOLAMIDE (BRINZOLAMIDE) [Concomitant]
  14. LATANOPROS (LATANOPROST) [Concomitant]

REACTIONS (4)
  - AGITATION [None]
  - HALLUCINATION [None]
  - MANIA [None]
  - STEREOTYPY [None]
